FAERS Safety Report 14707754 (Version 1)
Quarter: 2018Q2

REPORT INFORMATION
  Report Type: Spontaneous
  Country: FR (occurrence: FR)
  Receive Date: 20180403
  Receipt Date: 20180403
  Transmission Date: 20180711
  Serious: Yes (Other)
  Sender: FDA-Public Use
  Company Number: FR-MERCK KGAA-2044979

PATIENT
  Age: 60 Year
  Sex: Female
  Weight: 65 kg

DRUGS (1)
  1. NOVOTHYROX [Suspect]
     Active Substance: LEVOTHYROXINE SODIUM
     Indication: THYROID DISORDER
     Route: 048
     Dates: start: 20170501

REACTIONS (10)
  - Balance disorder [Unknown]
  - Weight increased [Unknown]
  - Memory impairment [Unknown]
  - Headache [Unknown]
  - Disturbance in attention [Unknown]
  - Tinnitus [Unknown]
  - Irritability [Unknown]
  - Nausea [Unknown]
  - Panic attack [Unknown]
  - Depressive symptom [Unknown]

NARRATIVE: CASE EVENT DATE: 201705
